FAERS Safety Report 19695505 (Version 1)
Quarter: 2021Q3

REPORT INFORMATION
  Report Type: Spontaneous
  Country: US (occurrence: US)
  Receive Date: 20210813
  Receipt Date: 20210813
  Transmission Date: 20211014
  Serious: Yes (Other)
  Sender: FDA-Public Use
  Company Number: US-SA-2021SA267457

PATIENT
  Age: 21 Year
  Sex: Female

DRUGS (1)
  1. KEVZARA [Suspect]
     Active Substance: SARILUMAB
     Indication: RHEUMATOID ARTHRITIS
     Dosage: 200 MG, QOW
     Route: 058
     Dates: start: 20210224, end: 2021

REACTIONS (6)
  - Rheumatoid arthritis [Unknown]
  - Mobility decreased [Unknown]
  - Joint swelling [Unknown]
  - Joint warmth [Unknown]
  - Abortion spontaneous [Unknown]
  - Joint stiffness [Unknown]

NARRATIVE: CASE EVENT DATE: 2021
